FAERS Safety Report 7654948-5 (Version None)
Quarter: 2011Q3

REPORT INFORMATION
  Report Type: 
  Country: None (occurrence: None)
  Receive Date: 20110728
  Receipt Date: 20110712
  Transmission Date: 20111222
  Serious: Yes (Hospitalization)
  Sender: FDA-Public Use
  Company Number: 2011MA008723

PATIENT
  Age: 24 Year
  Sex: Male
  Weight: 60 kg

DRUGS (5)
  1. PREDNISONE [Suspect]
     Indication: PNEUMOCYSTIS JIROVECI PNEUMONIA
     Dosage: 40 MG; BID; IV
     Route: 042
     Dates: start: 20070201
  2. LAMIFUDINE [Concomitant]
  3. TENOFOVIR DISOPROXIL FUMARATE [Concomitant]
  4. SULFATRIM AND SULFATRIM PEDIATRIC SUSPENSION (SULAMETHOXAZOLE/TRIMETHO [Suspect]
     Indication: PNEUMOCYSTIS JIROVECI PNEUMONIA
     Dosage: 1200 MG; Q6H; IV
     Route: 042
     Dates: start: 20070201
  5. LOPINAVIR/RITONAVIR [Concomitant]

REACTIONS (3)
  - BLOOD INSULIN INCREASED [None]
  - HYPOGLYCAEMIA [None]
  - CYTOMEGALOVIRUS CHORIORETINITIS [None]
